FAERS Safety Report 10476414 (Version 3)
Quarter: 2014Q4

REPORT INFORMATION
  Report Type: Spontaneous
  Country: GB (occurrence: GB)
  Receive Date: 20140925
  Receipt Date: 20141028
  Transmission Date: 20150528
  Serious: Yes (Other)
  Sender: FDA-Public Use
  Company Number: GB-ABBVIE-14K-167-1287289-00

PATIENT

DRUGS (1)
  1. HUMIRA [Suspect]
     Active Substance: ADALIMUMAB
     Indication: ANKYLOSING SPONDYLITIS
     Route: 065

REACTIONS (7)
  - Fear of injection [Unknown]
  - Therapeutic response unexpected [Unknown]
  - Drug effect decreased [Unknown]
  - Colitis [Unknown]
  - Ankylosing spondylitis [Unknown]
  - Injection site pain [Unknown]
  - Stress [Unknown]

NARRATIVE: CASE EVENT DATE: 2013
